FAERS Safety Report 4807560-7 (Version None)
Quarter: 2005Q4

REPORT INFORMATION
  Report Type: 
  Country: None (occurrence: None)
  Receive Date: 20051020
  Receipt Date: 20051007
  Transmission Date: 20060501
  Serious: Yes (Other)
  Sender: FDA-Public Use
  Company Number: DSA_70835_2005

PATIENT
  Age: 46 Year
  Sex: Male

DRUGS (2)
  1. DARVON [Suspect]
     Indication: BACK PAIN
     Dosage: DF PRN PO
     Route: 048
     Dates: start: 20050701
  2. NEURONTIN [Suspect]
     Indication: AFFECTIVE DISORDER
     Dosage: 900 MG QDAY PO
     Route: 048
     Dates: start: 20010101

REACTIONS (3)
  - CEREBROVASCULAR ACCIDENT [None]
  - DRUG INTERACTION [None]
  - TRANSIENT ISCHAEMIC ATTACK [None]
